FAERS Safety Report 14361379 (Version 1)
Quarter: 2018Q1

REPORT INFORMATION
  Report Type: Report from Study
  Country: US (occurrence: US)
  Receive Date: 20180108
  Receipt Date: 20180108
  Transmission Date: 20180509
  Serious: Yes (Hospitalization, Other)
  Sender: FDA-Public Use
  Company Number: US-UCBSA-2017052895

PATIENT
  Age: 39 Year
  Sex: Male

DRUGS (1)
  1. LEVETIRACETAM. [Suspect]
     Active Substance: LEVETIRACETAM
     Indication: PARTIAL SEIZURES
     Dosage: UNK

REACTIONS (3)
  - Pneumothorax [Unknown]
  - Head injury [Unknown]
  - Victim of crime [Unknown]

NARRATIVE: CASE EVENT DATE: 201706
